FAERS Safety Report 5630360-5 (Version None)
Quarter: 2008Q1

REPORT INFORMATION
  Report Type: 
  Country: None (occurrence: None)
  Receive Date: 20080219
  Receipt Date: 20080215
  Transmission Date: 20080703
  Serious: Yes (Life-Threatening, Hospitalization)
  Sender: FDA-Public Use
  Company Number: PHHY2008JP01405

PATIENT
  Age: 43 Year
  Sex: Male

DRUGS (5)
  1. PARLODEL [Suspect]
     Indication: DEPRESSION
     Dosage: 2.5MG/DAY
     Route: 048
     Dates: start: 20050604, end: 20061216
  2. ANAFRANIL [Suspect]
     Indication: DEPRESSION
     Dosage: 75MG/DAY
     Dates: start: 20040730
  3. REQUIP [Concomitant]
  4. PAXIL [Suspect]
     Dosage: 10 MG/DAY
     Route: 048
     Dates: start: 20040417, end: 20061118
  5. AKINETON [Suspect]
     Dosage: 3 MG/DAY
     Dates: start: 20040813, end: 20070606

REACTIONS (4)
  - CARDIAC FAILURE CONGESTIVE [None]
  - CARDIAC HYPERTROPHY [None]
  - CONGESTIVE CARDIOMYOPATHY [None]
  - HEPATITIS [None]
